FAERS Safety Report 13744396 (Version 1)
Quarter: 2017Q3

REPORT INFORMATION
  Report Type: Spontaneous
  Country: TR (occurrence: TR)
  Receive Date: 20170712
  Receipt Date: 20170712
  Transmission Date: 20171127
  Serious: Yes (Other)
  Sender: FDA-Public Use
  Company Number: TR-009507513-1707TUR001096

PATIENT
  Age: 50 Year
  Sex: Male
  Weight: 84 kg

DRUGS (1)
  1. HYZAAR [Suspect]
     Active Substance: HYDROCHLOROTHIAZIDE\LOSARTAN POTASSIUM
     Indication: TENSION
     Dosage: 100/12.5 MG, ONCE A DAY
     Route: 048
     Dates: start: 20151101

REACTIONS (4)
  - Gout [Unknown]
  - Dizziness [Unknown]
  - Libido decreased [Unknown]
  - Dizziness postural [None]

NARRATIVE: CASE EVENT DATE: 20170501
